FAERS Safety Report 15742874 (Version 1)
Quarter: 2018Q4

REPORT INFORMATION
  Report Type: Report from Study
  Country: None (occurrence: HU)
  Receive Date: 20181219
  Receipt Date: 20181219
  Transmission Date: 20190205
  Serious: Yes (Hospitalization)
  Sender: FDA-Public Use
  Company Number: HU-ABBVIE-18S-076-2569767-00

PATIENT
  Age: 74 Year
  Sex: Male

DRUGS (9)
  1. DIAPREL MR [Concomitant]
     Active Substance: GLICLAZIDE
     Indication: DIABETES MELLITUS
     Route: 048
     Dates: start: 2000
  2. CORBILTA [Concomitant]
     Active Substance: CARBIDOPA\ENTACAPONE\LEVODOPA
     Indication: PARKINSON^S DISEASE
     Dosage: 200/50/200 MG, 1 TABLET AT NIGHT
     Route: 048
     Dates: start: 2017
  3. GABAGAMMA [Concomitant]
     Active Substance: GABAPENTIN
     Indication: POLYNEUROPATHY
     Route: 048
     Dates: start: 2017
  4. ASPIRIN. [Concomitant]
     Active Substance: ASPIRIN
     Indication: PROPHYLAXIS
     Route: 048
     Dates: start: 2000
  5. DUODOPA [Suspect]
     Active Substance: CARBIDOPA\LEVODOPA
     Indication: PARKINSON^S DISEASE
     Dosage: MD10.4 ML; CD DAY 3.2 ML/H; ED 1.5 ML
     Route: 050
     Dates: start: 20161201
  6. COVEREX AS KOMB FORTE [Concomitant]
     Indication: HYPERTENSION
     Dosage: 10/2.5 MG, 1 TABLET AT A TIME
     Route: 048
     Dates: start: 2000
  7. COVEREX AS [Concomitant]
     Active Substance: PERINDOPRIL ARGININE
     Indication: HYPERTENSION
     Dosage: 1 TABLET IN THE MORNING
     Route: 048
     Dates: start: 2000
  8. RALNEA [Concomitant]
     Indication: PARKINSON^S DISEASE
     Route: 048
     Dates: start: 2014
  9. MERCKFORMIN [Concomitant]
     Active Substance: METFORMIN HYDROCHLORIDE
     Indication: DIABETES MELLITUS
     Dosage: 1 TABLET AT A TIME
     Route: 048
     Dates: start: 2000

REACTIONS (8)
  - Fall [Recovered/Resolved]
  - Parkinson^s disease [Not Recovered/Not Resolved]
  - Arthralgia [Not Recovered/Not Resolved]
  - Hip fracture [Recovered/Resolved]
  - Bacterial infection [Unknown]
  - Contusion [Recovering/Resolving]
  - Pyrexia [Unknown]
  - Altered state of consciousness [Unknown]

NARRATIVE: CASE EVENT DATE: 201811
